FAERS Safety Report 17796223 (Version 1)
Quarter: 2020Q2

REPORT INFORMATION
  Report Type: Report from Study
  Country: CA (occurrence: CA)
  Receive Date: 20200517
  Receipt Date: 20200517
  Transmission Date: 20200714
  Serious: Yes (Hospitalization, Other)
  Sender: FDA-Public Use
  Company Number: PHHY2016CA067353

PATIENT
  Age: 79 Year
  Sex: Male

DRUGS (5)
  1. SANDOSTATIN LAR DEPOT [Suspect]
     Active Substance: OCTREOTIDE ACETATE
     Indication: CARCINOID TUMOUR
     Dosage: 20 MG, QMO (EVERY 4 WEEKS)
     Route: 030
     Dates: start: 20160617
  2. SANDOSTATIN LAR DEPOT [Suspect]
     Active Substance: OCTREOTIDE ACETATE
     Dosage: 30 MG, QMO (EVERY 4 WEEKS)
     Route: 030
     Dates: start: 20160823
  3. IMODIUM [Concomitant]
     Active Substance: LOPERAMIDE HYDROCHLORIDE
     Indication: PRODUCT USED FOR UNKNOWN INDICATION
     Dosage: 1 UNK, PRN
     Route: 065
  4. SANDOSTATIN [Suspect]
     Active Substance: OCTREOTIDE ACETATE
     Indication: CARCINOID TUMOUR
     Dosage: 100 MCG/ML
     Route: 058
     Dates: start: 20160506, end: 20160506
  5. SANDOSTATIN LAR DEPOT [Suspect]
     Active Substance: OCTREOTIDE ACETATE
     Dosage: 20 MG, QMO
     Route: 030
     Dates: start: 20160617

REACTIONS (13)
  - Intestinal obstruction [Unknown]
  - Second primary malignancy [Unknown]
  - Arthralgia [Recovered/Resolved]
  - Rib fracture [Recovered/Resolved]
  - Hepatic cancer [Unknown]
  - Discomfort [Unknown]
  - Fall [Unknown]
  - Blood pressure systolic increased [Unknown]
  - Abdominal hernia [Unknown]
  - Back pain [Recovered/Resolved]
  - Heart rate decreased [Unknown]
  - Body temperature decreased [Unknown]
  - Injection site pain [Unknown]

NARRATIVE: CASE EVENT DATE: 20160617
